FAERS Safety Report 21203250 (Version 3)
Quarter: 2022Q4

REPORT INFORMATION
  Report Type: Spontaneous
  Country: US (occurrence: US)
  Receive Date: 20220811
  Receipt Date: 20221011
  Transmission Date: 20230113
  Serious: Yes (Disabling)
  Sender: FDA-Public Use
  Company Number: US-PFIZER INC-PV202200040541

PATIENT
  Age: 26 Year
  Sex: Female
  Weight: 72.562 kg

DRUGS (3)
  1. NARDIL [Suspect]
     Active Substance: PHENELZINE SULFATE
     Indication: Depression
     Dosage: 52.5 MG, DAILY (30MG AM, 22.5 MG PM)
     Dates: start: 199106
  2. NARDIL [Suspect]
     Active Substance: PHENELZINE SULFATE
     Indication: Bipolar II disorder
     Dosage: 52 MG, DAILY (30MG AM, 22 MG PM 52 MG TOTAL)
     Dates: start: 1991
  3. LITHIUM [Concomitant]
     Active Substance: LITHIUM
     Dosage: UNK
     Dates: start: 199106

REACTIONS (4)
  - Depression [Unknown]
  - Product formulation issue [Unknown]
  - Therapeutic product effect incomplete [Unknown]
  - Product prescribing error [Unknown]

NARRATIVE: CASE EVENT DATE: 19910601
